FAERS Safety Report 18118122 (Version 1)
Quarter: 2020Q3

REPORT INFORMATION
  Report Type: Spontaneous
  Country: GB (occurrence: GB)
  Receive Date: 20200806
  Receipt Date: 20200806
  Transmission Date: 20201103
  Serious: Yes (Other)
  Sender: FDA-Public Use
  Company Number: GB-PFIZER INC-2020295499

PATIENT
  Age: 84 Year
  Sex: Female

DRUGS (10)
  1. ATRACURIUM BESILATE [Suspect]
     Active Substance: ATRACURIUM BESYLATE
     Indication: ANAESTHESIA
     Dosage: 35 MG (0.75 MG/KG)
  2. FENTANYL. [Concomitant]
     Active Substance: FENTANYL
     Indication: CHOLECYSTECTOMY
  3. DIAZEPAM. [Concomitant]
     Active Substance: DIAZEPAM
     Indication: PREMEDICATION
  4. NITROUS OXIDE. [Concomitant]
     Active Substance: NITROUS OXIDE
     Indication: MAINTENANCE OF ANAESTHESIA
     Dosage: UNK
  5. ATRACURIUM BESILATE [Suspect]
     Active Substance: ATRACURIUM BESYLATE
     Indication: CHOLECYSTECTOMY
  6. FENTANYL. [Concomitant]
     Active Substance: FENTANYL
     Indication: ANAESTHESIA
     Dosage: 100 UG
  7. OXYGEN. [Concomitant]
     Active Substance: OXYGEN
     Indication: MAINTENANCE OF ANAESTHESIA
     Dosage: UNK
  8. METHOHEXITONE [Concomitant]
     Active Substance: METHOHEXITAL
     Indication: ANAESTHESIA
     Dosage: 70 MG
  9. METHOHEXITONE [Concomitant]
     Active Substance: METHOHEXITAL
     Indication: CHOLECYSTECTOMY
  10. DIAZEPAM. [Concomitant]
     Active Substance: DIAZEPAM
     Indication: CHOLECYSTECTOMY
     Dosage: 10 MG (TWO HOURS BEFORE SURGERY)
     Route: 048

REACTIONS (1)
  - Nodal arrhythmia [Recovered/Resolved]
